FAERS Safety Report 6594702-9 (Version None)
Quarter: 2010Q1

REPORT INFORMATION
  Report Type: 
  Country: None (occurrence: None)
  Receive Date: 20100222
  Receipt Date: 20100212
  Transmission Date: 20100710
  Serious: Yes (Hospitalization, Other)
  Sender: FDA-Public Use
  Company Number: US-AMGEN-QUU347881

PATIENT
  Sex: Male

DRUGS (6)
  1. ENBREL [Suspect]
     Indication: PSORIASIS
     Route: 065
     Dates: start: 20070508
  2. PSORALEN [Concomitant]
  3. OXSORALEN [Concomitant]
  4. FOLTX [Concomitant]
  5. VALIUM [Concomitant]
  6. ROZEREM [Concomitant]

REACTIONS (35)
  - ALANINE AMINOTRANSFERASE INCREASED [None]
  - ANORGASMIA [None]
  - ARTHRITIS [None]
  - ASPARTATE AMINOTRANSFERASE INCREASED [None]
  - ASTHENIA [None]
  - BALANCE DISORDER [None]
  - BLOOD MAGNESIUM DECREASED [None]
  - BLOOD SODIUM ABNORMAL [None]
  - CEREBELLAR ATROPHY [None]
  - CONFUSIONAL STATE [None]
  - DELIRIUM [None]
  - DENTAL CARIES [None]
  - DIARRHOEA [None]
  - DIVERTICULITIS [None]
  - ERECTILE DYSFUNCTION [None]
  - FALL [None]
  - FRACTURED SKULL DEPRESSED [None]
  - INFECTION [None]
  - LOSS OF CONSCIOUSNESS [None]
  - MALAISE [None]
  - MARCHIAFAVA-BIGNAMI DISEASE [None]
  - MEMORY IMPAIRMENT [None]
  - NAUSEA [None]
  - NERVE DEGENERATION [None]
  - OSMOTIC DEMYELINATION SYNDROME [None]
  - PNEUMONIA [None]
  - PRURITUS GENERALISED [None]
  - PSORIASIS [None]
  - RASH PAPULAR [None]
  - SEPSIS [None]
  - STRESS [None]
  - TOOTH FRACTURE [None]
  - VOMITING [None]
  - WEIGHT DECREASED [None]
  - WERNICKE-KORSAKOFF SYNDROME [None]
